FAERS Safety Report 5931396-7 (Version None)
Quarter: 2008Q4

REPORT INFORMATION
  Report Type: 
  Country: None (occurrence: None)
  Receive Date: 20081027
  Receipt Date: 20081017
  Transmission Date: 20090506
  Serious: Yes (Death)
  Sender: FDA-Public Use
  Company Number: KR-ROCHE-592377

PATIENT
  Sex: Male
  Weight: 45 kg

DRUGS (9)
  1. CAPECITABINE [Suspect]
     Indication: GASTRIC CANCER
     Dosage: FREQUENCY REPORTED AS 14 DAY/3 WEEK
     Route: 048
     Dates: start: 20080813, end: 20080912
  2. CAPECITABINE [Suspect]
     Route: 048
     Dates: end: 20081002
  3. CAPECITABINE [Suspect]
     Dosage: DOSE REDUCED
     Route: 048
     Dates: start: 20081006
  4. TRASTUZUMAB [Suspect]
     Indication: GASTRIC CANCER
     Dosage: LOADING DOSE.
     Route: 042
     Dates: start: 20080813, end: 20080813
  5. TRASTUZUMAB [Suspect]
     Dosage: MAINTENANCE DOSE. FORM REPORTED AS INFUSION, TEMPORARILY INTERRUPTED.
     Route: 042
     Dates: start: 20080904, end: 20081002
  6. TRASTUZUMAB [Suspect]
     Route: 042
     Dates: start: 20081006
  7. CISPLATIN [Suspect]
     Indication: GASTRIC CANCER
     Dosage: FORM REPORTED AS INFUSION, TEMPORARILY INTERRUPTED
     Route: 042
     Dates: start: 20080813, end: 20081002
  8. CISPLATIN [Suspect]
     Route: 042
     Dates: start: 20081006
  9. ATACAND HCT [Concomitant]
     Indication: DRUG USE FOR UNKNOWN INDICATION
     Route: 065
     Dates: start: 20080921, end: 20081002

REACTIONS (1)
  - DEATH [None]
